FAERS Safety Report 5158919-2 (Version None)
Quarter: 2006Q4

REPORT INFORMATION
  Report Type: 
  Country: None (occurrence: None)
  Receive Date: 20061117
  Receipt Date: 20061006
  Transmission Date: 20070319
  Serious: Yes (Hospitalization)
  Sender: FDA-Public Use
  Company Number: HQWYE538603JUL06

PATIENT
  Age: 41 Year
  Sex: Male
  Weight: 70.82 kg

DRUGS (22)
  1. EFFEXOR XR [Suspect]
     Indication: DEPRESSION
     Dosage: 37.5 MG 1X PER 1 DAY; ORAL (SEE IMAGE)
     Route: 048
     Dates: start: 20010326, end: 20010101
  2. EFFEXOR XR [Suspect]
     Indication: DEPRESSION
     Dosage: 37.5 MG 1X PER 1 DAY; ORAL (SEE IMAGE)
     Route: 048
     Dates: end: 20020901
  3. EFFEXOR XR [Suspect]
     Indication: DEPRESSION
     Dosage: 37.5 MG 1X PER 1 DAY; ORAL (SEE IMAGE)
     Route: 048
     Dates: start: 20020901, end: 20040401
  4. EFFEXOR XR [Suspect]
     Indication: DEPRESSION
     Dosage: 37.5 MG 1X PER 1 DAY; ORAL (SEE IMAGE)
     Route: 048
     Dates: start: 20040401, end: 20040705
  5. EFFEXOR XR [Suspect]
     Indication: DEPRESSION
     Dosage: 37.5 MG 1X PER 1 DAY; ORAL (SEE IMAGE)
     Route: 048
     Dates: start: 20010101
  6. NASONEX [Concomitant]
  7. WELLBUTRIN XL [Concomitant]
  8. DOXYCYCLINE HYCLATE [Concomitant]
  9. RHINOCORT [Concomitant]
  10. AMOXICILLIN [Concomitant]
  11. AMOXICILLIN [Concomitant]
  12. AMOXICILLIN [Concomitant]
  13. BUPROPION HCL [Concomitant]
  14. PREDNISONE TAB [Concomitant]
  15. PREDNISONE TAB [Concomitant]
  16. PREDNISONE TAB [Concomitant]
  17. PREDNISONE TAB [Concomitant]
  18. ALORAZOLAM [Concomitant]
  19. VIAGRA [Concomitant]
  20. LEVAQUIN [Concomitant]
  21. ZITHROMAX [Suspect]
  22. ZITHROMAX (ALZITHROMYCIN) [Concomitant]

REACTIONS (18)
  - ALCOHOL USE [None]
  - ANXIETY [None]
  - BLOOD BICARBONATE INCREASED [None]
  - CONDITION AGGRAVATED [None]
  - DEPRESSION [None]
  - DRUG WITHDRAWAL SYNDROME [None]
  - DYSSTASIA [None]
  - FAECAL INCONTINENCE [None]
  - FAMILY STRESS [None]
  - IMPULSE-CONTROL DISORDER [None]
  - MANIA [None]
  - MENTAL IMPAIRMENT [None]
  - NIGHTMARE [None]
  - OBSESSIVE-COMPULSIVE DISORDER [None]
  - SLEEP DISORDER [None]
  - SUICIDE ATTEMPT [None]
  - TINNITUS [None]
  - URINARY INCONTINENCE [None]
